FAERS Safety Report 4447788-1 (Version None)
Quarter: 2004Q3

REPORT INFORMATION
  Report Type: 
  Country: None (occurrence: None)
  Receive Date: 20040817
  Receipt Date: 20040225
  Transmission Date: 20050211
  Serious: Yes (Hospitalization)
  Sender: FDA-Public Use
  Company Number: MEDI-0001527

PATIENT
  Age: 3 Month
  Sex: Male
  Weight: 5.4432 kg

DRUGS (3)
  1. SYNAGIS [Suspect]
     Indication: ANTIVIRAL PROPHYLAXIS
     Dosage: 81 MG, 1 IN 30 D, INTRAMUSCULAR; 1 IN 30 D, INTRAMUSCULAR
     Route: 030
     Dates: start: 20031229, end: 20040127
  2. SYNAGIS [Suspect]
     Indication: ANTIVIRAL PROPHYLAXIS
     Dosage: 81 MG, 1 IN 30 D, INTRAMUSCULAR; 1 IN 30 D, INTRAMUSCULAR
     Route: 030
     Dates: start: 20031229
  3. SYNAGIS [Suspect]
     Indication: ANTIVIRAL PROPHYLAXIS
     Dosage: 81 MG, 1 IN 30 D, INTRAMUSCULAR; 1 IN 30 D, INTRAMUSCULAR
     Route: 030
     Dates: start: 20040227

REACTIONS (1)
  - RESPIRATORY SYNCYTIAL VIRUS INFECTION [None]
